FAERS Safety Report 7475113-0 (Version None)
Quarter: 2011Q1

REPORT INFORMATION
  Report Type: 
  Country: None (occurrence: None)
  Receive Date: 20110302
  Receipt Date: 20100827
  Transmission Date: 20110831
  Serious: No
  Sender: FDA-Public Use
  Company Number: 163-21880-08080173

PATIENT
  Age: 68 Year
  Sex: Male

DRUGS (9)
  1. ATENOLOL [Concomitant]
  2. CYCLOPHOSPHAMIDE [Concomitant]
  3. LIPITOR [Concomitant]
  4. DECADRON [Concomitant]
  5. REVLIMID [Suspect]
     Indication: MULTIPLE MYELOMA
     Dosage: 25 MG, DAILY X 21 DAYS, PO; 5 MG, 1 IN 1 D, PO
     Route: 048
     Dates: start: 20091001
  6. REVLIMID [Suspect]
     Indication: MULTIPLE MYELOMA
     Dosage: 25 MG, DAILY X 21 DAYS, PO; 5 MG, 1 IN 1 D, PO
     Route: 048
     Dates: start: 20080701
  7. WARFARIN SODIUM [Concomitant]
  8. FLUCONAZOLE [Concomitant]
  9. ACYCLOVIR [Concomitant]

REACTIONS (6)
  - BONE PAIN [None]
  - HYPERHIDROSIS [None]
  - DIARRHOEA [None]
  - NAUSEA [None]
  - DYSURIA [None]
  - EAR DISCOMFORT [None]
